FAERS Safety Report 5503087-8 (Version None)
Quarter: 2007Q4

REPORT INFORMATION
  Report Type: 
  Country: None (occurrence: None)
  Receive Date: 20071031
  Receipt Date: 20071023
  Transmission Date: 20080405
  Serious: Yes (Other)
  Sender: FDA-Public Use
  Company Number: LB-SANOFI-SYNTHELABO-A01200711954

PATIENT
  Age: 48 Year
  Sex: Male
  Weight: 67 kg

DRUGS (7)
  1. LESCOL [Concomitant]
     Indication: DYSLIPIDAEMIA
     Route: 048
  2. ASPICOT [Concomitant]
     Indication: ACUTE CORONARY SYNDROME
     Route: 048
  3. CORVASAL [Concomitant]
     Indication: ACUTE CORONARY SYNDROME
     Route: 048
  4. CONCOR [Concomitant]
     Indication: ACUTE CORONARY SYNDROME
     Route: 048
  5. PLAVIX [Suspect]
     Indication: CORONARY ANGIOPLASTY
     Route: 048
     Dates: start: 20070806
  6. PLAVIX [Suspect]
     Indication: STENT PLACEMENT
     Route: 048
     Dates: start: 20070806
  7. PLAVIX [Suspect]
     Indication: ACUTE CORONARY SYNDROME
     Route: 048
     Dates: start: 20070806

REACTIONS (1)
  - FACIAL PALSY [None]
